FAERS Safety Report 8213560-X (Version None)
Quarter: 2012Q1

REPORT INFORMATION
  Report Type: 
  Country: None (occurrence: None)
  Receive Date: 20120315
  Receipt Date: 20120313
  Transmission Date: 20120608
  Serious: Yes (Death, Life-Threatening, Hospitalization, Other)
  Sender: FDA-Public Use
  Company Number: AU-BAXTER-2012BH007611

PATIENT
  Sex: Female

DRUGS (1)
  1. EXTRANEAL [Suspect]
     Indication: DIALYSIS
     Route: 033

REACTIONS (4)
  - HYPOGLYCAEMIA [None]
  - PNEUMONIA [None]
  - DEATH [None]
  - DEVICE INTERACTION [None]
